FAERS Safety Report 18724829 (Version 1)
Quarter: 2021Q1

REPORT INFORMATION
  Report Type: Spontaneous
  Country: CN (occurrence: CN)
  Receive Date: 20210111
  Receipt Date: 20210111
  Transmission Date: 20210419
  Serious: Yes (Other)
  Sender: FDA-Public Use
  Company Number: CN-PFIZER INC-2021008388

PATIENT
  Age: 13 Year
  Sex: Female
  Weight: 43.8 kg

DRUGS (16)
  1. ENDOXAN [CYCLOPHOSPHAMIDE] [Suspect]
     Active Substance: CYCLOPHOSPHAMIDE
     Dosage: 0.4 G, 1X/DAY
     Route: 041
     Dates: start: 20200918, end: 20200919
  2. PREDNISONE. [Suspect]
     Active Substance: PREDNISONE
     Dosage: 40 MG, 1X/DAY
     Route: 048
     Dates: start: 20200830, end: 20200901
  3. MEDROL [Suspect]
     Active Substance: METHYLPREDNISOLONE
     Indication: HENOCH-SCHONLEIN PURPURA NEPHRITIS
     Dosage: 24 MG, 2X/DAY
     Route: 048
     Dates: start: 20200821, end: 20200826
  4. MEDROL [Suspect]
     Active Substance: METHYLPREDNISOLONE
     Dosage: 32 MG, 1X/DAY
     Route: 048
     Dates: start: 20200902, end: 20201008
  5. ENDOXAN [CYCLOPHOSPHAMIDE] [Suspect]
     Active Substance: CYCLOPHOSPHAMIDE
     Dosage: 0.4 G, 1X/DAY
     Route: 041
     Dates: start: 20201007, end: 20201008
  6. MEDROL [Suspect]
     Active Substance: METHYLPREDNISOLONE
     Dosage: 20 MG, 1X/DAY
     Route: 048
     Dates: start: 20201115, end: 20201222
  7. ENDOXAN [CYCLOPHOSPHAMIDE] [Suspect]
     Active Substance: CYCLOPHOSPHAMIDE
     Dosage: 0.4 G, 1X/DAY
     Route: 041
     Dates: start: 20201023, end: 20201024
  8. ENDOXAN [CYCLOPHOSPHAMIDE] [Suspect]
     Active Substance: CYCLOPHOSPHAMIDE
     Dosage: 0.4 G, 1X/DAY
     Route: 041
     Dates: start: 20201113, end: 20201114
  9. ENDOXAN [CYCLOPHOSPHAMIDE] [Suspect]
     Active Substance: CYCLOPHOSPHAMIDE
     Indication: HENOCH-SCHONLEIN PURPURA NEPHRITIS
     Dosage: 0.4 G, 1X/DAY
     Route: 041
     Dates: start: 20200830, end: 20200831
  10. SOLU?MEDROL [Suspect]
     Active Substance: METHYLPREDNISOLONE SODIUM SUCCINATE
     Indication: HENOCH-SCHONLEIN PURPURA NEPHRITIS
     Dosage: 0.5 G, 1X/DAY
     Route: 041
     Dates: start: 20200815, end: 20200817
  11. PREDNISONE. [Suspect]
     Active Substance: PREDNISONE
     Dosage: 30 MG, 1X/DAY
     Route: 048
     Dates: start: 20200804, end: 20200814
  12. SOLU?MEDROL [Suspect]
     Active Substance: METHYLPREDNISOLONE SODIUM SUCCINATE
     Dosage: 0.5 G, 1X/DAY
     Route: 041
     Dates: start: 20200827, end: 20200829
  13. ENDOXAN [CYCLOPHOSPHAMIDE] [Suspect]
     Active Substance: CYCLOPHOSPHAMIDE
     Dosage: 0.4 G, 1X/DAY
     Route: 041
     Dates: start: 20201129, end: 20201130
  14. PREDNISONE. [Suspect]
     Active Substance: PREDNISONE
     Indication: HENOCH-SCHONLEIN PURPURA NEPHRITIS
     Dosage: 20 MG, 1X/DAY
     Route: 048
     Dates: start: 20200730, end: 20200803
  15. PREDNISONE. [Suspect]
     Active Substance: PREDNISONE
     Dosage: 30 MG, 1X/DAY
     Route: 048
     Dates: start: 20200818, end: 20200820
  16. MEDROL [Suspect]
     Active Substance: METHYLPREDNISOLONE
     Dosage: 24 MG, 1X/DAY
     Route: 048
     Dates: start: 20201009, end: 20201114

REACTIONS (3)
  - Urinary tract infection [Recovering/Resolving]
  - Infection [Recovering/Resolving]
  - Vulvovaginal mycotic infection [Recovering/Resolving]

NARRATIVE: CASE EVENT DATE: 20201218
